FAERS Safety Report 20087451 (Version 4)
Quarter: 2022Q1

REPORT INFORMATION
  Report Type: Report from Study
  Country: US (occurrence: US)
  Receive Date: 20211118
  Receipt Date: 20220225
  Transmission Date: 20220423
  Serious: Yes (Life-Threatening, Hospitalization, Other)
  Sender: FDA-Public Use
  Company Number: US-PFIZER INC-202101588258

PATIENT
  Age: 18 Year
  Sex: Female
  Weight: 80.7 kg

DRUGS (8)
  1. VINCRISTINE SULFATE [Suspect]
     Active Substance: VINCRISTINE SULFATE
     Indication: Acute lymphocytic leukaemia
     Dosage: 2 MG, 1X/DAY (QD) (DAY 15,22, 43, AND 50)
     Route: 042
     Dates: start: 20210917, end: 20211029
  2. VINCRISTINE SULFATE [Suspect]
     Active Substance: VINCRISTINE SULFATE
     Dosage: 2 MG, QD (DAY 15,22, 43, AND 50)
     Route: 042
     Dates: start: 20211102, end: 20211207
  3. CYTARABINE [Suspect]
     Active Substance: CYTARABINE
     Indication: Acute lymphocytic leukaemia
     Dosage: 145 MG, 1X/DAY (QD) (DAY 1-4,8-11, 29-32) MILLIGRAM/SQ. METER
     Route: 042
     Dates: start: 20210903, end: 20211207
  4. METHOTREXATE SODIUM [Suspect]
     Active Substance: METHOTREXATE SODIUM
     Indication: Acute lymphocytic leukaemia
     Dosage: 15 MG, QD (DAY 1, 8,15, 22)
     Route: 037
     Dates: start: 20210903, end: 20211207
  5. CYCLOPHOSPHAMIDE [Suspect]
     Active Substance: CYCLOPHOSPHAMIDE
     Indication: Acute lymphocytic leukaemia
     Dosage: 1940 MG, (QD) (DAY 1 AND 29)
     Route: 042
     Dates: start: 20210903, end: 20211207
  6. RUXOLITINIB [Suspect]
     Active Substance: RUXOLITINIB
     Indication: Acute lymphocytic leukaemia
     Dosage: 95 MG, (BID) (DAY 1-14, 29-42), TABLET
     Route: 048
     Dates: start: 20210903, end: 20211207
  7. MERCAPTOPURINE [Suspect]
     Active Substance: MERCAPTOPURINE
     Indication: Acute lymphocytic leukaemia
     Dosage: 150 MG, (QD) (DAY1-14, 29-42)
     Route: 048
     Dates: start: 20210903, end: 20211207
  8. PEGASPARGASE [Suspect]
     Active Substance: PEGASPARGASE
     Indication: Acute lymphocytic leukaemia
     Dosage: 3750 IU, 1X/DAY (QD) (DAY 15 AND 43)
     Route: 042
     Dates: start: 20210917, end: 20211207

REACTIONS (7)
  - Respiratory failure [Recovered/Resolved]
  - Sepsis [Recovered/Resolved]
  - Febrile neutropenia [Recovered/Resolved]
  - Hypotension [Recovered/Resolved]
  - Sepsis [Recovered/Resolved]
  - Delirium [Recovered/Resolved]
  - Delirium [Recovered/Resolved]

NARRATIVE: CASE EVENT DATE: 20211029
